FAERS Safety Report 8225703-2 (Version None)
Quarter: 2012Q1

REPORT INFORMATION
  Report Type: 
  Country: None (occurrence: None)
  Receive Date: 20120321
  Receipt Date: 20120316
  Transmission Date: 20120608
  Serious: Yes (Death)
  Sender: FDA-Public Use
  Company Number: DK-JNJFOC-20110201293

PATIENT
  Sex: Male
  Weight: 87 kg

DRUGS (4)
  1. CONCERTA [Suspect]
     Dosage: STOP DATE: SEP-2010
     Route: 048
     Dates: start: 20100910
  2. CONCERTA [Suspect]
     Indication: ATTENTION DEFICIT/HYPERACTIVITY DISORDER
     Dosage: CONCERTA 18 MG DEPOTTABLETTER
     Route: 048
     Dates: start: 20110107
  3. CONCERTA [Suspect]
     Dosage: STOP DATE: SEP-2010
     Route: 048
     Dates: start: 20100910
  4. CONCERTA [Suspect]
     Indication: RESTLESSNESS
     Dosage: CONCERTA 18 MG DEPOTTABLETTER
     Route: 048
     Dates: start: 20110107

REACTIONS (1)
  - SUDDEN DEATH [None]
